FAERS Safety Report 25260090 (Version 2)
Quarter: 2025Q2

REPORT INFORMATION
  Report Type: Report from Study
  Country: US (occurrence: US)
  Receive Date: 20250501
  Receipt Date: 20250519
  Transmission Date: 20250716
  Serious: No
  Sender: OTSUKA
  Company Number: US-MMM-Otsuka-ETKOW53V

PATIENT
  Age: 48 Year
  Sex: Female

DRUGS (2)
  1. TOLVAPTAN [Suspect]
     Active Substance: TOLVAPTAN
     Indication: Congenital cystic kidney disease
     Dosage: 45 MG, QD (EVERY MORNING (QAM))
     Route: 048
  2. TOLVAPTAN [Suspect]
     Active Substance: TOLVAPTAN
     Dosage: 15 MG, QD (8 H LATER)
     Route: 048

REACTIONS (7)
  - Bladder discomfort [Recovered/Resolved]
  - Middle insomnia [Unknown]
  - Weight decreased [Unknown]
  - Polydipsia [Unknown]
  - Thirst [Unknown]
  - Insurance issue [Unknown]
  - Intentional dose omission [Unknown]

NARRATIVE: CASE EVENT DATE: 20250501
